FAERS Safety Report 7085603-0 (Version None)
Quarter: 2010Q4

REPORT INFORMATION
  Report Type: 
  Country: None (occurrence: None)
  Receive Date: 20101105
  Receipt Date: 20101025
  Transmission Date: 20110411
  Serious: Yes (Death, Life-Threatening, Hospitalization)
  Sender: FDA-Public Use
  Company Number: GB-PFIZER INC-2010104511

PATIENT
  Sex: Female
  Weight: 74 kg

DRUGS (8)
  1. SOMATROPIN [Suspect]
     Dosage: 0.53 MG, 1X/DAY (7 INJECTIONS PER WEEK)
     Dates: start: 19971106, end: 20020719
  2. NIZATIDINE [Concomitant]
     Dosage: 50 MG, UNK
     Route: 048
     Dates: start: 19970201
  3. SULPIRIDE [Concomitant]
     Dosage: 200 MG, DAILY
     Route: 048
     Dates: start: 19960801
  4. IMIPRAMINE [Concomitant]
     Indication: DYSTHYMIC DISORDER
     Dosage: 100 MG, DAILY
     Route: 048
     Dates: start: 19960501
  5. BISACODYL [Concomitant]
     Dosage: 10 MG, DAILY
     Route: 048
     Dates: start: 19960501
  6. LEVOTHYROXINE [Concomitant]
     Indication: PRIMARY HYPOTHYROIDISM
     Dosage: 125 MG, DAILY
     Route: 048
     Dates: start: 19960223
  7. LEVOTHYROXINE [Concomitant]
     Indication: BLOOD THYROID STIMULATING HORMONE DECREASED
  8. EFFEXOR [Concomitant]
     Indication: DYSTHYMIC DISORDER
     Dosage: 1 DF, DAILY
     Route: 048
     Dates: start: 19940701

REACTIONS (1)
  - ABDOMINAL PAIN [None]
